FAERS Safety Report 16797919 (Version 4)
Quarter: 2019Q4

REPORT INFORMATION
  Report Type: Spontaneous
  Country: JP (occurrence: JP)
  Receive Date: 20190912
  Receipt Date: 20191118
  Transmission Date: 20200122
  Serious: Yes (Death, Life-Threatening, Hospitalization, Other)
  Sender: FDA-Public Use
  Company Number: JP-009507513-1909JPN000436J

PATIENT
  Age: 84 Year
  Sex: Male
  Weight: 54 kg

DRUGS (18)
  1. TRELEGY ELLIPTA [Concomitant]
     Active Substance: FLUTICASONE FUROATE\UMECLIDINIUM BROMIDE\VILANTEROL TRIFENATATE
     Indication: CHRONIC OBSTRUCTIVE PULMONARY DISEASE
     Dosage: UNK UNK, QD
     Dates: start: 20190712, end: 20190902
  2. MAGNESIUM OXIDE. [Concomitant]
     Active Substance: MAGNESIUM OXIDE
     Indication: CONSTIPATION
     Dosage: 330 MILLIGRAM, TID
     Route: 048
     Dates: start: 20190712, end: 20190902
  3. CARBOCISTEINE [Concomitant]
     Active Substance: CARBOCYSTEINE
     Indication: LUNG NEOPLASM MALIGNANT
     Dosage: 250 MILLIGRAM, TID
     Route: 048
     Dates: start: 20190712, end: 20190902
  4. LIXIANA [Concomitant]
     Active Substance: EDOXABAN TOSYLATE
     Dosage: 60 MILLIGRAM
     Route: 048
     Dates: end: 20190902
  5. KEYTRUDA [Suspect]
     Active Substance: PEMBROLIZUMAB
     Indication: NON-SMALL CELL LUNG CANCER
     Dosage: 200 MILLIGRAM, Q3W
     Route: 041
     Dates: start: 20190722, end: 20190819
  6. VOLTMIE [Concomitant]
     Active Substance: LIPASE\PROTEASE
     Dosage: UNK
     Route: 048
     Dates: end: 20190902
  7. NAUZELIN [Concomitant]
     Active Substance: DOMPERIDONE
     Dosage: 10, UNK
     Route: 048
     Dates: end: 20190902
  8. CALONAL [Concomitant]
     Active Substance: ACETAMINOPHEN
     Dosage: 500, UNK
     Route: 048
     Dates: start: 20190806, end: 20190902
  9. MS CONTIN [Concomitant]
     Active Substance: MORPHINE SULFATE
     Indication: CANCER PAIN
     Dosage: 30 MILLIGRAM, BID
     Route: 048
     Dates: start: 20190712, end: 20190902
  10. FOLIAMIN [Concomitant]
     Active Substance: FOLIC ACID
     Dosage: 5 MILLIGRAM
     Route: 065
     Dates: end: 20190902
  11. KARY UNI [Concomitant]
     Active Substance: PIRENOXINE
     Dosage: 0.005 PERCENT
     Route: 065
     Dates: end: 20190902
  12. MEDROL [Concomitant]
     Active Substance: METHYLPREDNISOLONE
     Dosage: 4 MILLIGRAM
     Route: 048
     Dates: start: 20190807, end: 20190902
  13. FLUTICASONE FUROATE [Concomitant]
     Active Substance: FLUTICASONE FUROATE
     Dosage: UNK
     Route: 065
     Dates: end: 20190902
  14. SYMPROIC [Concomitant]
     Active Substance: NALDEMEDINE
     Dosage: 0.2 MILLIGRAM
     Route: 048
     Dates: start: 20190803, end: 20190902
  15. RHEUMATREX [Concomitant]
     Active Substance: METHOTREXATE SODIUM
     Dosage: 2 MILLIGRAM
     Route: 048
     Dates: end: 20190902
  16. OPSO [Concomitant]
     Active Substance: MORPHINE HYDROCHLORIDE
     Dosage: 5 MILLIGRAM
     Route: 048
     Dates: start: 20190803, end: 20190902
  17. TAKECAB [Concomitant]
     Active Substance: VONOPRAZAN FUMURATE
     Dosage: 10 MILLIGRAM
     Route: 048
     Dates: start: 20190807, end: 20190902
  18. LASIX [Concomitant]
     Active Substance: FUROSEMIDE
     Dosage: 20 MILLIGRAM
     Route: 048
     Dates: start: 20190827, end: 20190902

REACTIONS (2)
  - Interstitial lung disease [Fatal]
  - Off label use [Unknown]

NARRATIVE: CASE EVENT DATE: 20190902
